FAERS Safety Report 9225871 (Version 2)
Quarter: 2013Q2

REPORT INFORMATION
  Report Type: Spontaneous
  Country: US (occurrence: US)
  Receive Date: 20130411
  Receipt Date: 20130411
  Transmission Date: 20140414
  Serious: No
  Sender: FDA-Public Use
  Company Number: US-ASTELLAS-2012US002262

PATIENT
  Sex: Female

DRUGS (9)
  1. PROTOPIC [Suspect]
     Indication: ECZEMA
     Dosage: 0.1 %, UNKNOWN/D
     Route: 061
     Dates: start: 20120216, end: 20120218
  2. PROTOPIC [Suspect]
     Indication: EYELIDS PRURITUS
  3. PROTOPIC [Suspect]
     Indication: EYELID IRRITATION
  4. DORZOLAMIDE HYDROCHLORIDE W/TIMOLOL MALEATE [Suspect]
     Indication: GLAUCOMA
     Dosage: UNK
     Route: 047
  5. BRIMONIDINE TARTRATE [Concomitant]
     Indication: GLAUCOMA
     Dosage: UNK
     Route: 047
  6. LUMIGAN [Concomitant]
     Indication: GLAUCOMA
     Dosage: UNK
     Route: 047
  7. ELIDEL [Concomitant]
     Indication: EYELIDS PRURITUS
     Dosage: UNK
     Route: 065
  8. ELIDEL [Concomitant]
     Indication: EYELID IRRITATION
  9. CORTICOSTEROIDS [Concomitant]
     Indication: EYELIDS PRURITUS
     Dosage: UNK
     Route: 047

REACTIONS (5)
  - Hypersensitivity [Unknown]
  - Glaucoma surgery [Unknown]
  - Oropharyngeal pain [Unknown]
  - Headache [Unknown]
  - Influenza like illness [Recovered/Resolved]
